FAERS Safety Report 19207623 (Version 1)
Quarter: 2021Q2

REPORT INFORMATION
  Report Type: Spontaneous
  Country: US (occurrence: US)
  Receive Date: 20210503
  Receipt Date: 20210503
  Transmission Date: 20210717
  Serious: No
  Sender: FDA-Public Use
  Company Number: US-RVL_PHARMACEUTICALS-USA-POI0573202100085

PATIENT
  Age: 63 Year
  Sex: Female

DRUGS (2)
  1. COSMETIC CREAM [Concomitant]
     Indication: SKIN COSMETIC PROCEDURE
     Route: 061
     Dates: start: 202012
  2. UPNEEQ [Suspect]
     Active Substance: OXYMETAZOLINE HYDROCHLORIDE
     Indication: EYELID PTOSIS
     Dosage: OD INITIALLY AND LATER OU
     Route: 047
     Dates: start: 202102, end: 202102

REACTIONS (2)
  - Swelling face [Recovered/Resolved]
  - Mydriasis [Recovered/Resolved]

NARRATIVE: CASE EVENT DATE: 202102
